FAERS Safety Report 9736236 (Version 3)
Quarter: 2013Q4

REPORT INFORMATION
  Report Type: Report from Study
  Country: IT (occurrence: IT)
  Receive Date: 20131206
  Receipt Date: 20131209
  Transmission Date: 20140711
  Serious: Yes (Death)
  Sender: FDA-Public Use
  Company Number: IT-ROCHE-1256066

PATIENT
  Sex: Male
  Weight: 60 kg

DRUGS (6)
  1. AZITHROMYCIN [Concomitant]
     Route: 042
     Dates: start: 20110129, end: 20110130
  2. FILGRASTIM [Concomitant]
     Route: 058
     Dates: start: 20110129, end: 20110130
  3. OSELTAMIVIR [Suspect]
     Indication: INFLUENZA
     Route: 042
  4. MEROPENEM [Concomitant]
     Route: 042
     Dates: start: 20110129, end: 20110130
  5. CLARITROMICINA [Concomitant]
     Route: 042
     Dates: start: 20110129, end: 20110130
  6. AMPHOTERICIN B [Concomitant]
     Route: 042
     Dates: start: 20110129, end: 20110130

REACTIONS (2)
  - Septic shock [Fatal]
  - Multi-organ failure [Fatal]
